FAERS Safety Report 4856256-4 (Version None)
Quarter: 2005Q4

REPORT INFORMATION
  Report Type: 
  Country: None (occurrence: None)
  Receive Date: 20051215
  Receipt Date: 20051215
  Transmission Date: 20060501
  Serious: Yes (Other)
  Sender: FDA-Public Use
  Company Number: None

PATIENT
  Age: 65 Year
  Sex: Female
  Weight: 77.1115 kg

DRUGS (1)
  1. METFORMIN [Suspect]
     Indication: DIABETES MELLITUS NON-INSULIN-DEPENDENT
     Dosage: 500 MG ORAL
     Route: 048
     Dates: start: 20051204, end: 20051204

REACTIONS (6)
  - ABDOMINAL PAIN [None]
  - BALANCE DISORDER [None]
  - CHEST PAIN [None]
  - DIZZINESS [None]
  - GLOSSODYNIA [None]
  - HYPERGLYCAEMIA [None]
